FAERS Safety Report 11337476 (Version 1)
Quarter: 2015Q3

REPORT INFORMATION
  Report Type: Spontaneous
  Country: US (occurrence: US)
  Receive Date: 20150803
  Receipt Date: 20150803
  Transmission Date: 20151125
  Serious: No
  Sender: FDA-Public Use
  Company Number: US-ELI_LILLY_AND_COMPANY-US200601004853

PATIENT
  Age: 44 Year
  Sex: Female
  Weight: 81.63 kg

DRUGS (23)
  1. OLANZAPINE. [Suspect]
     Active Substance: OLANZAPINE
     Dosage: 10 MG, UNK
     Dates: start: 20051222
  2. PULMICORT TURBUHALER [Concomitant]
     Active Substance: BUDESONIDE
     Dates: start: 20030514, end: 20040713
  3. ANTIVERT [Concomitant]
     Active Substance: MECLIZINE HYDROCHLORIDE
     Dosage: 25 MG, AS NEEDED
     Dates: start: 20040703
  4. MIRTAZAPINE. [Concomitant]
     Active Substance: MIRTAZAPINE
     Dosage: 30 MG, EACH EVENING
     Dates: start: 20020204, end: 20040206
  5. COMBIVENT [Concomitant]
     Active Substance: ALBUTEROL SULFATE\IPRATROPIUM BROMIDE
     Dosage: 14.7 G, UNK
     Dates: start: 20030514
  6. OLANZAPINE. [Suspect]
     Active Substance: OLANZAPINE
     Dosage: 5 MG, UNK
     Dates: start: 20051019
  7. COMBIVENT [Concomitant]
     Active Substance: ALBUTEROL SULFATE\IPRATROPIUM BROMIDE
     Dosage: 18 UG, 4/D
     Dates: start: 20030529, end: 20040206
  8. PROPRANOLOL [Concomitant]
     Active Substance: PROPRANOLOL\PROPRANOLOL HYDROCHLORIDE
     Dosage: 20 MG, 2/D
     Dates: start: 20010530
  9. HYDROCODONE BITARTRATE AND ACETAMINOPHEN [Concomitant]
     Active Substance: ACETAMINOPHEN\HYDROCODONE BITARTRATE
     Dosage: 5 MG, UNK
     Dates: start: 20021014
  10. OLANZAPINE. [Suspect]
     Active Substance: OLANZAPINE
     Dosage: 20 MG, 2/D
     Dates: start: 20030610
  11. LORAZEPAM. [Concomitant]
     Active Substance: LORAZEPAM
     Dosage: 2 MG, UNK
     Dates: start: 20041022, end: 20041123
  12. METHYLPREDNISOLONE. [Concomitant]
     Active Substance: METHYLPREDNISOLONE
     Dosage: 4 MG, UNK
     Dates: start: 20021008, end: 20050113
  13. PROTONIX [Concomitant]
     Active Substance: PANTOPRAZOLE SODIUM
     Dosage: 40 MG, DAILY (1/D)
     Dates: start: 20021008
  14. OLANZAPINE. [Suspect]
     Active Substance: OLANZAPINE
     Dosage: 20 MG, DAILY (1/D)
     Route: 048
     Dates: start: 20020510
  15. FLUOXETINE HYDROCHLORIDE. [Concomitant]
     Active Substance: FLUOXETINE HYDROCHLORIDE
     Dosage: 40 MG, DAILY (1/D)
     Dates: start: 20020508
  16. PRAMIPEXOLE. [Concomitant]
     Active Substance: PRAMIPEXOLE
     Dosage: 0.125 UNK, 2/D
     Dates: start: 20030204
  17. OLANZAPINE. [Suspect]
     Active Substance: OLANZAPINE
     Indication: ANXIETY
     Dosage: UNK, UNK
     Dates: start: 2000
  18. OLANZAPINE. [Suspect]
     Active Substance: OLANZAPINE
     Dosage: 10 MG, 3/D
     Route: 048
     Dates: start: 20030204
  19. FLUOXETINE HYDROCHLORIDE. [Concomitant]
     Active Substance: FLUOXETINE HYDROCHLORIDE
     Dosage: 20 MG, 2/D
     Dates: start: 20011227
  20. METHYLPREDNISOLONE. [Concomitant]
     Active Substance: METHYLPREDNISOLONE
     Dates: start: 20000707
  21. TRAMADOL HCL [Concomitant]
     Active Substance: TRAMADOL HYDROCHLORIDE
     Dosage: 50 MG, 3/D
     Dates: start: 20030514
  22. OLANZAPINE. [Suspect]
     Active Substance: OLANZAPINE
     Dosage: 15 MG, DAILY (1/D)
     Dates: start: 20011227
  23. OLANZAPINE. [Suspect]
     Active Substance: OLANZAPINE
     Dosage: 10 MG, 2/D
     Dates: start: 20030610

REACTIONS (8)
  - Weight decreased [Unknown]
  - Weight increased [Unknown]
  - Back pain [Unknown]
  - Arthralgia [Unknown]
  - Mental disorder [Unknown]
  - Visual acuity reduced [Unknown]
  - Type 2 diabetes mellitus [Unknown]
  - Gastritis [Unknown]

NARRATIVE: CASE EVENT DATE: 2003
